FAERS Safety Report 10509050 (Version 1)
Quarter: 2014Q4

REPORT INFORMATION
  Report Type: Report from Study
  Country: BR (occurrence: BR)
  Receive Date: 20141009
  Receipt Date: 20141009
  Transmission Date: 20150528
  Serious: Yes (Other)
  Sender: FDA-Public Use
  Company Number: BR-ABBVIE-14K-020-1291659-00

PATIENT
  Age: 55 Year
  Sex: Female
  Weight: 66 kg

DRUGS (6)
  1. HUMIRA [Suspect]
     Active Substance: ADALIMUMAB
     Route: 058
     Dates: start: 20100215
  2. PREDNISONE. [Concomitant]
     Active Substance: PREDNISONE
     Indication: RHEUMATOID ARTHRITIS
     Route: 048
     Dates: start: 20140701
  3. FOLIC ACID. [Concomitant]
     Active Substance: FOLIC ACID
     Indication: RHEUMATOID ARTHRITIS
     Route: 048
     Dates: start: 20140701
  4. HUMIRA [Suspect]
     Active Substance: ADALIMUMAB
     Indication: RHEUMATOID ARTHRITIS
     Route: 058
     Dates: start: 20040101, end: 20080916
  5. HUMIRA [Suspect]
     Active Substance: ADALIMUMAB
     Route: 058
     Dates: start: 20081031, end: 20100101
  6. METHOTREXATE [Concomitant]
     Active Substance: METHOTREXATE
     Indication: RHEUMATOID ARTHRITIS
     Route: 048
     Dates: start: 20140701

REACTIONS (6)
  - Osteoarthritis [Recovered/Resolved]
  - Rheumatoid arthritis [Not Recovered/Not Resolved]
  - Blood cholesterol increased [Recovered/Resolved]
  - Osteoarthritis [Recovered/Resolved]
  - Musculoskeletal pain [Not Recovered/Not Resolved]
  - Hypertension [Recovered/Resolved]

NARRATIVE: CASE EVENT DATE: 20080201
